FAERS Safety Report 14389708 (Version 2)
Quarter: 2018Q4

REPORT INFORMATION
  Report Type: Report from Study
  Country: FR (occurrence: FR)
  Receive Date: 20180115
  Receipt Date: 20181128
  Transmission Date: 20190204
  Serious: Yes (Disabling)
  Sender: FDA-Public Use
  Company Number: FR-GILEAD-2018-0313630

PATIENT
  Age: 48 Year
  Sex: Female
  Weight: 73 kg

DRUGS (1)
  1. ELVITEGRAVIR/COBICISTAT/EMTRICITABINE/TENOFOVIR ALAFENAMIDE [Suspect]
     Active Substance: COBICISTAT\ELVITEGRAVIR\EMTRICITABINE\TENOFOVIR
     Indication: HIV INFECTION
     Dosage: 1 DF, QD
     Route: 048
     Dates: start: 20170913, end: 20171227

REACTIONS (4)
  - Insomnia [Recovered/Resolved]
  - Headache [Recovered/Resolved]
  - Mental fatigue [Unknown]
  - Abdominal pain [Recovered/Resolved]

NARRATIVE: CASE EVENT DATE: 201709
